FAERS Safety Report 15715128 (Version 1)
Quarter: 2018Q4

REPORT INFORMATION
  Report Type: Spontaneous
  Country: IT (occurrence: IT)
  Receive Date: 20181212
  Receipt Date: 20181212
  Transmission Date: 20190205
  Serious: Yes (Hospitalization)
  Sender: FDA-Public Use
  Company Number: IT-PFIZER INC-2018505355

PATIENT
  Age: 83 Year
  Sex: Male

DRUGS (9)
  1. XANAX [Suspect]
     Active Substance: ALPRAZOLAM
     Dosage: UNK
     Dates: start: 20180514, end: 20180519
  2. SEREUPIN [Concomitant]
     Active Substance: PAROXETINE HYDROCHLORIDE
  3. DIBASE [Concomitant]
     Active Substance: CHOLECALCIFEROL
  4. LANSOPRAZOLE. [Concomitant]
     Active Substance: LANSOPRAZOLE
  5. LARGACTIL LEIRAS [CHLORPROMAZINE HYDROCHLORIDE] [Suspect]
     Active Substance: CHLORPROMAZINE HYDROCHLORIDE
     Indication: HICCUPS
     Dosage: 1 DF, 1X/DAY
     Route: 048
     Dates: start: 20180514, end: 20180519
  6. PLAVIX [Concomitant]
     Active Substance: CLOPIDOGREL BISULFATE
  7. TRIATEC HCT [Concomitant]
     Active Substance: HYDROCHLOROTHIAZIDE\RAMIPRIL
  8. MITTOVAL [Concomitant]
     Active Substance: ALFUZOSIN HYDROCHLORIDE
  9. AVODART [Concomitant]
     Active Substance: DUTASTERIDE

REACTIONS (1)
  - Sopor [Unknown]

NARRATIVE: CASE EVENT DATE: 20180519
